FAERS Safety Report 15221649 (Version 3)
Quarter: 2018Q3

REPORT INFORMATION
  Report Type: Spontaneous
  Country: US (occurrence: US)
  Receive Date: 20180731
  Receipt Date: 20180831
  Transmission Date: 20181010
  Serious: No
  Sender: FDA-Public Use
  Company Number: US-BAUSCH-BL-2018-020179

PATIENT
  Age: 83 Year
  Sex: Male
  Weight: 72.64 kg

DRUGS (2)
  1. LOTEMAX [Suspect]
     Active Substance: LOTEPREDNOL ETABONATE
     Indication: INFLAMMATION
     Route: 047
     Dates: start: 20180715
  2. ZOCOR [Concomitant]
     Active Substance: SIMVASTATIN
     Indication: PRODUCT USED FOR UNKNOWN INDICATION
     Route: 048

REACTIONS (5)
  - Ocular discomfort [Not Recovered/Not Resolved]
  - Eye pain [Not Recovered/Not Resolved]
  - Product container issue [Not Recovered/Not Resolved]
  - Sensation of foreign body [Not Recovered/Not Resolved]
  - Product dropper issue [Not Recovered/Not Resolved]

NARRATIVE: CASE EVENT DATE: 20180715
